FAERS Safety Report 8592911 (Version 3)
Quarter: 2013Q3

REPORT INFORMATION
  Report Type: Spontaneous
  Country: US (occurrence: US)
  Receive Date: 20120604
  Receipt Date: 20130726
  Transmission Date: 20140515
  Serious: No
  Sender: FDA-Public Use
  Company Number: US-ASTRAZENECA-2012SE34721

PATIENT
  Sex: 0

DRUGS (12)
  1. NEXIUM [Suspect]
     Route: 048
     Dates: start: 2007
  2. PRILOSEC [Suspect]
     Route: 048
  3. PREVACID [Concomitant]
  4. ZANTAC [Concomitant]
     Dates: start: 2006
  5. TAGAMET [Concomitant]
  6. PEPCID [Concomitant]
  7. TUMS [Concomitant]
  8. ALKA-SELTZER [Concomitant]
  9. PEPTO-BISMOL [Concomitant]
  10. ROLAIDS [Concomitant]
  11. MYLANTA [Concomitant]
     Dosage: AS NEEDED
  12. MYLANTA [Concomitant]
     Dosage: OCCASIONALLY TWO

REACTIONS (2)
  - Osteoporosis [Unknown]
  - Multiple fractures [Unknown]
